FAERS Safety Report 6345938-3 (Version None)
Quarter: 2009Q3

REPORT INFORMATION
  Report Type: 
  Country: None (occurrence: None)
  Receive Date: 20090909
  Receipt Date: 20090831
  Transmission Date: 20100115
  Serious: Yes (Hospitalization)
  Sender: FDA-Public Use
  Company Number: B0591900A

PATIENT
  Age: 70 Year
  Sex: Male

DRUGS (1)
  1. KREDEX [Suspect]
     Indication: CARDIAC FAILURE
     Dosage: 6.25MG THREE TIMES PER DAY
     Route: 048
     Dates: start: 20090815

REACTIONS (3)
  - BLOOD PRESSURE DECREASED [None]
  - MEDICATION ERROR [None]
  - OVERDOSE [None]
